FAERS Safety Report 13285082 (Version 1)
Quarter: 2017Q1

REPORT INFORMATION
  Report Type: Spontaneous
  Country: US (occurrence: US)
  Receive Date: 20170301
  Receipt Date: 20170301
  Transmission Date: 20170428
  Serious: Yes (Other)
  Sender: FDA-Public Use
  Company Number: US-BAYER-2017-038974

PATIENT
  Age: 65 Year
  Sex: Female
  Weight: 52.97 kg

DRUGS (2)
  1. ALKA-SELTZER PLUS SEVERE COLD, MUCUS AND CONGESTION [Suspect]
     Active Substance: ACETAMINOPHEN\DEXTROMETHORPHAN HYDROBROMIDE\GUAIFENESIN\PHENYLEPHRINE HYDROCHLORIDE
     Indication: HYPERSENSITIVITY
     Dosage: 2 DF, 6ID, 1 LIQUID GEL 15 MINUTES APART
     Route: 048
     Dates: start: 20170225, end: 20170226
  2. ALKA-SELTZER PLUS SEVERE COLD, MUCUS AND CONGESTION [Suspect]
     Active Substance: ACETAMINOPHEN\DEXTROMETHORPHAN HYDROBROMIDE\GUAIFENESIN\PHENYLEPHRINE HYDROCHLORIDE
     Indication: NASOPHARYNGITIS

REACTIONS (2)
  - Product difficult to swallow [None]
  - Choking [Recovered/Resolved]

NARRATIVE: CASE EVENT DATE: 20170225
